FAERS Safety Report 17580268 (Version 1)
Quarter: 2020Q1

REPORT INFORMATION
  Report Type: Spontaneous
  Country: US (occurrence: US)
  Receive Date: 20200325
  Receipt Date: 20200325
  Transmission Date: 20200409
  Serious: No
  Sender: FDA-Public Use
  Company Number: US-SA-2020SA074869

PATIENT
  Sex: Female

DRUGS (13)
  1. FLUTICASONE;SALMETEROL [Concomitant]
     Active Substance: FLUTICASONE PROPIONATE\SALMETEROL XINAFOATE
  2. PREDNISONE. [Concomitant]
     Active Substance: PREDNISONE
  3. URSODIOL. [Concomitant]
     Active Substance: URSODIOL
  4. NUCALA [Concomitant]
     Active Substance: MEPOLIZUMAB
  5. IBUPROFEN. [Concomitant]
     Active Substance: IBUPROFEN
  6. ALPRAZOLAM. [Concomitant]
     Active Substance: ALPRAZOLAM
  7. EPINEPHRINE. [Concomitant]
     Active Substance: EPINEPHRINE
  8. MESALAMINE. [Concomitant]
     Active Substance: MESALAMINE
  9. PROAIR RESPICLICK [Concomitant]
     Active Substance: ALBUTEROL SULFATE
  10. FASENRA [Concomitant]
     Active Substance: BENRALIZUMAB
  11. ALBUTEROL SULFATE. [Concomitant]
     Active Substance: ALBUTEROL SULFATE
  12. DUPIXENT [Suspect]
     Active Substance: DUPILUMAB
     Indication: ASTHMA
     Dosage: 300 MG, QOW
     Route: 058
     Dates: start: 20190307
  13. LOSARTAN POTASSIUM. [Concomitant]
     Active Substance: LOSARTAN POTASSIUM

REACTIONS (1)
  - Drug hypersensitivity [Unknown]
